FAERS Safety Report 4892677-1 (Version None)
Quarter: 2006Q1

REPORT INFORMATION
  Report Type: 
  Country: None (occurrence: None)
  Receive Date: 20060125
  Receipt Date: 20060125
  Transmission Date: 20060701
  Serious: Yes (Hospitalization)
  Sender: FDA-Public Use
  Company Number: None

PATIENT
  Age: 74 Year
  Sex: Male

DRUGS (2)
  1. WARFARIN [Suspect]
     Indication: DEEP VEIN THROMBOSIS
     Dosage: 5MG M-F , 4MG S,S PO
     Route: 048
     Dates: start: 20041001, end: 20050801
  2. WARFARIN [Suspect]
     Indication: PULMONARY EMBOLISM
     Dosage: 5MG M-F , 4MG S,S PO
     Route: 048
     Dates: start: 20041001, end: 20050801

REACTIONS (5)
  - ASTHENIA [None]
  - FATIGUE [None]
  - HAEMOGLOBIN DECREASED [None]
  - INTERNATIONAL NORMALISED RATIO INCREASED [None]
  - TUMOUR HAEMORRHAGE [None]
